FAERS Safety Report 9523564 (Version 1)
Quarter: 2013Q3

REPORT INFORMATION
  Report Type: Spontaneous
  Country: CA (occurrence: CA)
  Receive Date: 20130913
  Receipt Date: 20130913
  Transmission Date: 20140515
  Serious: Yes (Life-Threatening, Hospitalization)
  Sender: FDA-Public Use
  Company Number: CA-ROCHE-1274150

PATIENT
  Age: 60 Year
  Sex: Male
  Weight: 88 kg

DRUGS (4)
  1. RITUXAN [Suspect]
     Indication: PRODUCT USED FOR UNKNOWN INDICATION
     Dosage: THERAPY DURATION: ONCE
     Route: 042
  2. CYCLOPHOSPHAMIDE [Suspect]
     Indication: PRODUCT USED FOR UNKNOWN INDICATION
     Dosage: THERAPY DURATION: ONCE
     Route: 042
  3. DOXORUBICIN HYDROCHLORIDE [Concomitant]
     Route: 065
  4. VINCRISTINE SULFATE [Concomitant]
     Route: 065

REACTIONS (4)
  - Acute respiratory distress syndrome [Recovered/Resolved]
  - Dyspnoea [Recovered/Resolved]
  - Interstitial lung disease [Recovered/Resolved]
  - Pyrexia [Recovered/Resolved]
